FAERS Safety Report 16867292 (Version 1)
Quarter: 2019Q4

REPORT INFORMATION
  Report Type: Spontaneous
  Country: GB (occurrence: GB)
  Receive Date: 20190929
  Receipt Date: 20190929
  Transmission Date: 20200122
  Serious: No
  Sender: FDA-Public Use
  Company Number: None

PATIENT
  Age: 34 Year
  Sex: Female

DRUGS (1)
  1. CODEINE PHOSPHATE 30MG AND THE 60MG ONE [Suspect]
     Active Substance: CODEINE PHOSPHATE
     Indication: SPHINCTER OF ODDI DYSFUNCTION

REACTIONS (1)
  - Sleep paralysis [None]
